FAERS Safety Report 15536939 (Version 4)
Quarter: 2020Q1

REPORT INFORMATION
  Report Type: Spontaneous
  Country: NL (occurrence: NL)
  Receive Date: 20181022
  Receipt Date: 20200204
  Transmission Date: 20200409
  Serious: Yes (Death, Hospitalization, Other)
  Sender: FDA-Public Use
  Company Number: NL-PFIZER INC-2018427809

PATIENT

DRUGS (5)
  1. OXALIPLATIN. [Suspect]
     Active Substance: OXALIPLATIN
     Indication: COLORECTAL CANCER
     Dosage: 85 MG/M2, EVERY TWO WEEKS (LAST DOSE: 17MAY2018)
     Route: 042
     Dates: start: 20180517, end: 20180517
  2. LEUCOVORIN [FOLINIC ACID] [Suspect]
     Active Substance: LEUCOVORIN
     Indication: COLORECTAL CANCER
     Dosage: 400 MG/M2, EVERY TWO WEEKS (LAST DOSE: 17MAY2018)
     Route: 042
     Dates: start: 20180517, end: 20180517
  3. BEVACIZUMAB. [Suspect]
     Active Substance: BEVACIZUMAB
     Indication: COLORECTAL CANCER
     Dosage: 5 MG/KG, EVERY TWO WEEKS (LAST DOSE: 17MAY2018)
     Route: 042
     Dates: start: 20180517, end: 20180517
  4. 5-FLUOROURACIL [FLUOROURACIL SODIUM] [Suspect]
     Active Substance: FLUOROURACIL SODIUM
     Indication: COLORECTAL CANCER
     Dosage: 3200 MG/M2, EVERY TWO WEEKS (LAST DOSE: 18MAY2018)
     Route: 042
     Dates: start: 20180517, end: 20180518
  5. IRINOTECAN HCL [Suspect]
     Active Substance: IRINOTECAN HYDROCHLORIDE
     Indication: COLORECTAL CANCER
     Dosage: 165 MG/M2, EVERY TWO WEEKS (LAST DOSE: 17-MAY-2018)
     Route: 042
     Dates: start: 20180517, end: 20180517

REACTIONS (4)
  - Diarrhoea [Recovered/Resolved]
  - Sepsis [Fatal]
  - Ileus [Recovered/Resolved]
  - Anaemia [Recovered/Resolved]

NARRATIVE: CASE EVENT DATE: 20180524
